FAERS Safety Report 18292872 (Version 1)
Quarter: 2020Q3

REPORT INFORMATION
  Report Type: Spontaneous
  Country: US (occurrence: US)
  Receive Date: 20200921
  Receipt Date: 20200921
  Transmission Date: 20201103
  Serious: Yes (Other)
  Sender: FDA-Public Use
  Company Number: None

PATIENT
  Age: 68 Year
  Sex: Female
  Weight: 56.7 kg

DRUGS (4)
  1. CAPECITABINE. [Suspect]
     Active Substance: CAPECITABINE
     Indication: MALIGNANT NIPPLE NEOPLASM FEMALE
     Dosage: ?          OTHER FREQUENCY:BID X14DAYS, 7OFF;?
     Route: 048
     Dates: start: 20200912, end: 20200921
  2. LOPERAMIDE 2MG [Concomitant]
     Active Substance: LOPERAMIDE
  3. CALCIUM CARBONATE?VITAMIN D 600?400MG [Concomitant]
  4. OXYCODONE 5MG [Concomitant]
     Active Substance: OXYCODONE

REACTIONS (1)
  - Hospice care [None]

NARRATIVE: CASE EVENT DATE: 20200921
